FAERS Safety Report 10166461 (Version 1)
Quarter: 2014Q2

REPORT INFORMATION
  Report Type: Spontaneous
  Country: US (occurrence: None)
  Receive Date: 20140509
  Receipt Date: 20140509
  Transmission Date: 20141212
  Serious: Yes (Other)
  Sender: FDA-Public Use
  Company Number: None

PATIENT
  Age: 37 Year
  Sex: Female

DRUGS (2)
  1. TECFIDERA 120MG BIOGEN IDEC [Suspect]
     Indication: MULTIPLE SCLEROSIS
     Route: 048
     Dates: start: 20140408, end: 20140415
  2. TECFIDERA 240MG BIOGEN IDEC [Suspect]
     Indication: MULTIPLE SCLEROSIS
     Dosage: 240MG  ONE DOSE ONLY PO
     Route: 048
     Dates: start: 20140415, end: 20140415

REACTIONS (3)
  - Arthralgia [None]
  - Arthralgia [None]
  - Arthralgia [None]
